FAERS Safety Report 4401290-1 (Version None)
Quarter: 2004Q3

REPORT INFORMATION
  Report Type: 
  Country: None (occurrence: None)
  Receive Date: 20040907
  Receipt Date: 20040212
  Transmission Date: 20050211
  Serious: No
  Sender: FDA-Public Use
  Company Number: US-BRISTOL-MYERS SQUIBB COMPANY-12504221

PATIENT
  Age: 57 Year
  Sex: Female

DRUGS (4)
  1. COUMADIN [Suspect]
     Indication: THROMBOSIS
     Route: 048
     Dates: end: 20040201
  2. ATENOLOL [Concomitant]
  3. LANOXIN [Concomitant]
  4. LIPITOR [Concomitant]

REACTIONS (3)
  - INTERNATIONAL NORMALISED RATIO INCREASED [None]
  - MALAISE [None]
  - MEDICATION ERROR [None]
